FAERS Safety Report 23473402 (Version 1)
Quarter: 2024Q1

REPORT INFORMATION
  Report Type: Spontaneous
  Country: BR (occurrence: BR)
  Receive Date: 20240203
  Receipt Date: 20240203
  Transmission Date: 20240410
  Serious: Yes (Other)
  Sender: FDA-Public Use
  Company Number: BR-Korea IPSEN-2024-00750

PATIENT
  Age: 24 Year
  Sex: Male

DRUGS (3)
  1. LANREOTIDE ACETATE [Suspect]
     Active Substance: LANREOTIDE ACETATE
     Indication: Neuroendocrine tumour
     Route: 065
  2. LANREOTIDE ACETATE [Suspect]
     Active Substance: LANREOTIDE ACETATE
     Indication: Gastrinoma
  3. LANREOTIDE ACETATE [Suspect]
     Active Substance: LANREOTIDE ACETATE
     Indication: Off label use

REACTIONS (2)
  - Haematemesis [Unknown]
  - Off label use [Unknown]
